FAERS Safety Report 13938208 (Version 1)
Quarter: 2017Q3

REPORT INFORMATION
  Report Type: Spontaneous
  Country: US (occurrence: US)
  Receive Date: 20170905
  Receipt Date: 20170905
  Transmission Date: 20171127
  Serious: No
  Sender: FDA-Public Use
  Company Number: PHEH2017US027906

PATIENT
  Age: 54 Year
  Sex: Female
  Weight: 68.3 kg

DRUGS (2)
  1. AMITRIPTYLINE [Concomitant]
     Active Substance: AMITRIPTYLINE
     Indication: PRODUCT USED FOR UNKNOWN INDICATION
     Dosage: UNK
     Route: 065
  2. NITROFURANTOIN CAPSULES USP [Suspect]
     Active Substance: NITROFURANTOIN
     Indication: URINARY TRACT INFECTION
     Dosage: 100 MG, BID (FOR 7 DAYS)
     Route: 048
     Dates: start: 201607

REACTIONS (3)
  - Neuropathy peripheral [Not Recovered/Not Resolved]
  - Hypoaesthesia [Unknown]
  - Burning sensation [Unknown]

NARRATIVE: CASE EVENT DATE: 201707
